FAERS Safety Report 18183218 (Version 1)
Quarter: 2020Q3

REPORT INFORMATION
  Report Type: Other
  Country: US (occurrence: US)
  Receive Date: 20200821
  Receipt Date: 20200821
  Transmission Date: 20201103
  Serious: Yes (Other)
  Sender: FDA-Public Use
  Company Number: US-STANDARD HOMEOPATHIC COMPANY-2088917

PATIENT
  Age: 93 Year
  Sex: Male

DRUGS (1)
  1. LEG CRAMPS PM [Suspect]
     Active Substance: CAUSTICUM\CINCHONA OFFICINALIS BARK\COPPER\LYCOPODIUM CLAVATUM SPORE\MAGNESIUM PHOSPHATE, DIBASIC TRIHYDRATE\MATRICARIA RECUTITA\OYSTER SHELL CALCIUM CARBONATE, CRUDE\SILICON DIOXIDE\SULFUR\TOXICODENDRON PUBESCENS LEAF
     Indication: MUSCLE SPASMS
     Route: 048
     Dates: start: 20200804, end: 20200804

REACTIONS (1)
  - Loss of consciousness [Recovered/Resolved]

NARRATIVE: CASE EVENT DATE: 20200804
